FAERS Safety Report 8393450-2 (Version None)
Quarter: 2012Q2

REPORT INFORMATION
  Report Type: 
  Country: None (occurrence: None)
  Receive Date: 20120529
  Receipt Date: 20120514
  Transmission Date: 20120825
  Serious: Yes (Disabling, Other)
  Sender: FDA-Public Use
  Company Number: CHPA2012US010995

PATIENT
  Sex: Male

DRUGS (5)
  1. PHENOBARBITAL TAB [Concomitant]
     Dosage: UNK
  2. OTHER CARDIAC PREPARATIONS [Concomitant]
     Dosage: UNK
  3. ZANTAC [Concomitant]
     Dosage: UNK
  4. MAALOX ANTACID/ANTIGAS MAX LIQ UNKNOWN [Suspect]
     Indication: PEPTIC ULCER
     Dosage: 1 TSP, TID
     Route: 048
     Dates: end: 20120501
  5. ALUMINUM HYDROXIDE AND MAGNESIUM TRISILICATE [Suspect]
     Indication: PEPTIC ULCER
     Dosage: 1 DF, TID
     Route: 048
     Dates: end: 20120501

REACTIONS (8)
  - THERAPEUTIC RESPONSE UNEXPECTED [None]
  - BLOOD CHOLESTEROL INCREASED [None]
  - CEREBROVASCULAR ACCIDENT [None]
  - DYSPEPSIA [None]
  - BLINDNESS UNILATERAL [None]
  - OFF LABEL USE [None]
  - PAIN [None]
  - INCORRECT DRUG ADMINISTRATION DURATION [None]
